FAERS Safety Report 17444528 (Version 2)
Quarter: 2020Q1

REPORT INFORMATION
  Report Type: Report from Study
  Country: None (occurrence: CL)
  Receive Date: 20200221
  Receipt Date: 20200316
  Transmission Date: 20200409
  Serious: Yes (Life-Threatening, Hospitalization, Other)
  Sender: FDA-Public Use
  Company Number: CL-ABBVIE-20K-034-3287443-00

PATIENT
  Age: 64 Year
  Sex: Female

DRUGS (5)
  1. HUMIRA [Suspect]
     Active Substance: ADALIMUMAB
     Indication: RHEUMATOID ARTHRITIS
     Route: 058
     Dates: start: 20190610, end: 20191114
  2. METHOTREXATE. [Concomitant]
     Active Substance: METHOTREXATE
     Indication: PRODUCT USED FOR UNKNOWN INDICATION
  3. LEFLUNOMIDE. [Concomitant]
     Active Substance: LEFLUNOMIDE
     Indication: PRODUCT USED FOR UNKNOWN INDICATION
  4. HUMIRA [Suspect]
     Active Substance: ADALIMUMAB
     Route: 058
  5. HYDROXYCHLOROQUINE [Concomitant]
     Active Substance: HYDROXYCHLOROQUINE
     Indication: PRODUCT USED FOR UNKNOWN INDICATION

REACTIONS (15)
  - Septic shock [Unknown]
  - Pleural effusion [Unknown]
  - Liver abscess [Unknown]
  - Bacterial infection [Recovered/Resolved]
  - Staphylococcal infection [Unknown]
  - Pulmonary fibrosis [Not Recovered/Not Resolved]
  - Myositis [Unknown]
  - Respiratory distress [Unknown]
  - Abscess limb [Unknown]
  - Pyrexia [Unknown]
  - Delirium [Unknown]
  - Pain [Unknown]
  - Psoas abscess [Unknown]
  - Medical induction of coma [Unknown]
  - Abscess [Unknown]

NARRATIVE: CASE EVENT DATE: 20191114
